FAERS Safety Report 21776727 (Version 2)
Quarter: 2022Q4

REPORT INFORMATION
  Report Type: Spontaneous
  Country: US (occurrence: US)
  Receive Date: 20221226
  Receipt Date: 20221226
  Transmission Date: 20230112
  Serious: No
  Sender: FDA-Public Use
  Company Number: US-COLLEGIUM PHARMACEUTICAL, INC.-2022CGM00226

PATIENT
  Sex: Female

DRUGS (20)
  1. NUCYNTA [Suspect]
     Active Substance: TAPENTADOL HYDROCHLORIDE
  2. DUPIXENT [Suspect]
     Active Substance: DUPILUMAB
     Dosage: 300 MG, 2X/MONTH (EVERY OTHER WEEK)
     Route: 058
     Dates: start: 20210120
  3. DEMEROL [Suspect]
     Active Substance: MEPERIDINE HYDROCHLORIDE
     Dosage: 300 MG
  4. GABAPENTIN [Suspect]
     Active Substance: GABAPENTIN
  5. OXYCODONE [Suspect]
     Active Substance: OXYCODONE
     Dosage: 10 MG
  6. APAP [Suspect]
     Active Substance: ACETAMINOPHEN
     Dosage: 300 MG
  7. PYRIDOSTIGMINE [Suspect]
     Active Substance: PYRIDOSTIGMINE
     Dosage: UNK
  8. SAVELLA [Suspect]
     Active Substance: MILNACIPRAN HYDROCHLORIDE
     Dosage: UNK
  9. BETHANECHOL [Concomitant]
     Active Substance: BETHANECHOL
  10. BREO ELLIPTA [Concomitant]
     Active Substance: FLUTICASONE FUROATE\VILANTEROL TRIFENATATE
  11. CULTURELLE [Concomitant]
     Active Substance: LACTOBACILLUS RHAMNOSUS
  12. DEXlLANT [Concomitant]
  13. DILTIAZEM [Concomitant]
     Active Substance: DILTIAZEM
  14. PLAVIX [Concomitant]
     Active Substance: CLOPIDOGREL BISULFATE
  15. TIZANIDINE [Concomitant]
     Active Substance: TIZANIDINE
  16. VITAMIN D [Concomitant]
     Active Substance: VITAMIN D NOS
  17. ZINC [Concomitant]
     Active Substance: ZINC
  18. SOL [Concomitant]
  19. CYANOCOBALAMIN [Concomitant]
     Active Substance: CYANOCOBALAMIN
  20. MAGNESIUM [Concomitant]
     Active Substance: MAGNESIUM

REACTIONS (4)
  - Dermatitis atopic [Not Recovered/Not Resolved]
  - Pain [Not Recovered/Not Resolved]
  - Rash [Not Recovered/Not Resolved]
  - Drug hypersensitivity [Unknown]
